FAERS Safety Report 8844449 (Version 1)
Quarter: 2012Q4

REPORT INFORMATION
  Report Type: Spontaneous
  Country: IN (occurrence: None)
  Receive Date: 20121012
  Receipt Date: 20121012
  Transmission Date: 20130627
  Serious: Yes (Other)
  Sender: FDA-Public Use
  Company Number: 2012P1060665

PATIENT
  Age: 52 Month
  Sex: Male

DRUGS (12)
  1. ETHAMBUTOL [Suspect]
     Indication: TUBERCULOSIS
     Dates: start: 200408
  2. ETHAMBUTOL [Suspect]
     Indication: TUBERCULOSIS
     Dates: start: 200608
  3. RIFAMPICIN (NO PREF. NAME) [Suspect]
     Indication: TUBERCULOSIS
     Dates: start: 200408
  4. RIFAMPICIN (NO PREF. NAME) [Suspect]
     Indication: TUBERCULOSIS
     Dates: start: 200605
  5. STREPTOMYCIN [Suspect]
     Indication: TUBERCULOSIS
     Dates: start: 200408
  6. PYRAZINAMIDE [Suspect]
     Dates: start: 200408
  7. PYRAZINAMIDE [Suspect]
     Dates: start: 200605
  8. ISONIAZID [Suspect]
     Indication: TUBERCULOSIS
     Dates: start: 200408
  9. ISONIAZID [Suspect]
     Indication: TUBERCULOSIS
     Dates: start: 200605
  10. CIPROFLOXACIN [Suspect]
     Indication: TUBERCULOSIS
     Dates: start: 200408
  11. STEROIDS [Suspect]
     Dates: start: 200408
  12. STEROIDS [Suspect]
     Dates: start: 200711

REACTIONS (9)
  - Diabetes insipidus [None]
  - Visual impairment [None]
  - Paradoxical drug reaction [None]
  - Type IV hypersensitivity reaction [None]
  - Optic atrophy [None]
  - Tuberculosis of central nervous system [None]
  - Disease progression [None]
  - Brain oedema [None]
  - Hydrocephalus [None]
